FAERS Safety Report 6582268-9 (Version None)
Quarter: 2010Q1

REPORT INFORMATION
  Report Type: 
  Country: None (occurrence: None)
  Receive Date: 20100216
  Receipt Date: 20091120
  Transmission Date: 20100710
  Serious: No
  Sender: FDA-Public Use
  Company Number: A0822128A

PATIENT
  Age: 70 Year
  Sex: Female

DRUGS (2)
  1. VERAMYST [Suspect]
     Dosage: 2SPR PER DAY
     Route: 045
     Dates: start: 20090401, end: 20090801
  2. ANTIBIOTIC [Concomitant]
     Indication: LUNG INFECTION

REACTIONS (1)
  - EPISTAXIS [None]
